FAERS Safety Report 8900942 (Version 1)
Quarter: 2012Q4

REPORT INFORMATION
  Report Type: 
  Country: US (occurrence: US)
  Receive Date: 20121109
  Receipt Date: 20121109
  Transmission Date: 20130627
  Serious: No
  Sender: FDA-Public Use
  Company Number: US-ASTRAZENECA-2009UW00538

PATIENT
  Age: 47 Year
  Sex: Female
  Weight: 77.6 kg

DRUGS (12)
  1. SEROQUEL [Suspect]
     Indication: ANXIETY
     Route: 048
     Dates: start: 200310, end: 200712
  2. SEROQUEL [Suspect]
     Indication: DEPRESSION
     Route: 048
     Dates: start: 200310, end: 200712
  3. SEROQUEL [Suspect]
     Indication: BIPOLAR DISORDER
     Route: 048
     Dates: start: 200310, end: 200712
  4. SEROQUEL [Suspect]
     Indication: SLEEP DISORDER
     Route: 048
     Dates: start: 200310, end: 200712
  5. NEXIUM [Suspect]
     Route: 048
  6. OMEPRAZOL [Concomitant]
     Indication: GASTROOESOPHAGEAL REFLUX DISEASE
     Route: 048
     Dates: start: 2007
  7. OMEPRAZOL [Concomitant]
     Indication: GASTROOESOPHAGEAL REFLUX DISEASE
     Route: 048
     Dates: start: 2007
  8. CLONAZEPAM [Concomitant]
     Indication: ANXIETY
     Dosage: 1 MG TO 3 MG DAILY
     Route: 048
     Dates: start: 2007
  9. FLUCONAZOLE [Concomitant]
     Indication: FUNGAL INFECTION
     Route: 048
     Dates: start: 2007
  10. LISINOPRIL [Concomitant]
     Indication: HYPERTENSION
     Dosage: TAKE 10MG EVERY DAY
     Route: 048
     Dates: start: 2007
  11. RANITIDINE [Concomitant]
     Indication: REFLUX LARYNGITIS
     Route: 048
     Dates: start: 2007
  12. TOPIRAMATE [Concomitant]
     Indication: MIGRAINE
     Route: 048
     Dates: start: 2007

REACTIONS (1)
  - Type 2 diabetes mellitus [Unknown]
